FAERS Safety Report 11800333 (Version 1)
Quarter: 2015Q4

REPORT INFORMATION
  Report Type: Spontaneous
  Country: DE (occurrence: DE)
  Receive Date: 20151203
  Receipt Date: 20151203
  Transmission Date: 20160305
  Serious: Yes (Hospitalization)
  Sender: FDA-Public Use
  Company Number: DE-009507513-1511DEU014793

PATIENT
  Age: 69 Year
  Sex: Male

DRUGS (4)
  1. DELIX (RAMIPRIL) [Concomitant]
     Active Substance: RAMIPRIL
     Dosage: 2.5 MG, 1 DAY
     Route: 048
  2. REMERGIL [Suspect]
     Active Substance: MIRTAZAPINE
     Dosage: 30 MICROGRAM, 1 DAY
     Route: 048
     Dates: start: 201504, end: 20150604
  3. ZYPREXA [Suspect]
     Active Substance: OLANZAPINE
     Dosage: 5 MG, 1 DAY
     Route: 048
     Dates: start: 201504, end: 20150604
  4. HYDROCHLOROTHIAZIDE. [Concomitant]
     Active Substance: HYDROCHLOROTHIAZIDE
     Dosage: 12.5 MG, 1 DAY, INTAKE FOR A LONG TIME
     Route: 048

REACTIONS (1)
  - Urinary hesitation [Unknown]

NARRATIVE: CASE EVENT DATE: 20150604
